FAERS Safety Report 5409908-1 (Version None)
Quarter: 2007Q3

REPORT INFORMATION
  Report Type: 
  Country: None (occurrence: None)
  Receive Date: 20070807
  Receipt Date: 20070725
  Transmission Date: 20080115
  Serious: Yes (Other)
  Sender: FDA-Public Use
  Company Number: URSO-2007-162

PATIENT
  Age: 74 Year
  Sex: Male

DRUGS (9)
  1. URSO 250 [Suspect]
     Dosage: 300 MG
     Dates: start: 20061215, end: 20070105
  2. NOVO HEPARIN (HEPARIN) [Concomitant]
  3. PLETAL [Concomitant]
  4. RADICUT (EDARAVONE) [Concomitant]
  5. FAMOTIDINE [Concomitant]
  6. VITAMEDIN (PYRIDOXINE HYDROCHLORIDE, CYANOCOBALAMIN, BENFOTIAMINE) [Concomitant]
  7. MARZULENE-S (LEVOGLUTAMIDE, AZULENE, SODIUM GUALENATE) [Concomitant]
  8. LIVACT (AMINO ACIDS NOS) [Concomitant]
  9. FAMOTIDINE [Concomitant]

REACTIONS (1)
  - HAEMORRHAGIC CEREBRAL INFARCTION [None]
